FAERS Safety Report 11513207 (Version 1)
Quarter: 2015Q3

REPORT INFORMATION
  Report Type: Spontaneous
  Country: US (occurrence: US)
  Receive Date: 20150903
  Receipt Date: 20150903
  Transmission Date: 20151125
  Serious: Yes (Other)
  Sender: FDA-Public Use
  Company Number: US-ELI_LILLY_AND_COMPANY-US201210004633

PATIENT
  Age: 63 Year
  Sex: Female

DRUGS (4)
  1. CYMBALTA [Suspect]
     Active Substance: DULOXETINE HYDROCHLORIDE
  2. XENAZINE [Concomitant]
     Active Substance: TETRABENAZINE
     Dosage: 1 DF, UNK
     Dates: end: 201208
  3. GEODON [Concomitant]
     Active Substance: ZIPRASIDONE HYDROCHLORIDE\ZIPRASIDONE MESYLATE
  4. XENAZINE [Concomitant]
     Active Substance: TETRABENAZINE
     Dosage: 12.5 MG, BID
     Dates: start: 20120829

REACTIONS (3)
  - Dyskinesia [Unknown]
  - Suicidal ideation [Unknown]
  - Tinnitus [Unknown]

NARRATIVE: CASE EVENT DATE: 20120929
